FAERS Safety Report 17397810 (Version 1)
Quarter: 2020Q1

REPORT INFORMATION
  Report Type: Spontaneous
  Country: FR (occurrence: FR)
  Receive Date: 20200210
  Receipt Date: 20200210
  Transmission Date: 20200409
  Serious: Yes (Death)
  Sender: FDA-Public Use
  Company Number: FR-MYLANLABS-2020M1013900

PATIENT
  Age: 60 Year
  Sex: Female
  Weight: 53 kg

DRUGS (3)
  1. FLUOROURACILE [Suspect]
     Active Substance: FLUOROURACIL
     Indication: RECTAL CANCER
     Dosage: + BOLUS 600 MG LE 04/11
     Route: 042
     Dates: start: 20191104, end: 20191106
  2. OXALIPLATIN. [Suspect]
     Active Substance: OXALIPLATIN
     Indication: RECTAL CANCER
     Dosage: 130 MILLIGRAM
     Route: 042
     Dates: start: 20191104, end: 20191104
  3. IRINOTECAN [Suspect]
     Active Substance: IRINOTECAN
     Indication: RECTAL CANCER
     Dosage: 270 MILLIGRAM
     Route: 042
     Dates: start: 20191104, end: 20191104

REACTIONS (6)
  - Dehydration [Fatal]
  - Bradycardia [Fatal]
  - Abdominal pain [Fatal]
  - Diarrhoea [Fatal]
  - Hypotension [Fatal]
  - Cardio-respiratory arrest [Fatal]

NARRATIVE: CASE EVENT DATE: 20191118
